FAERS Safety Report 6731847-4 (Version None)
Quarter: 2010Q2

REPORT INFORMATION
  Report Type: 
  Country: None (occurrence: None)
  Receive Date: 20100519
  Receipt Date: 20100510
  Transmission Date: 20101027
  Serious: Yes (Life-Threatening, Other)
  Sender: FDA-Public Use
  Company Number: CN-NOVOPROD-307424

PATIENT
  Age: 64 Year
  Sex: Male

DRUGS (3)
  1. NOVOLOG MIX 70/30 [Suspect]
     Indication: TYPE 2 DIABETES MELLITUS
     Dosage: UNK
     Route: 058
     Dates: start: 20080101
  2. NOVOLOG MIX 70/30 [Suspect]
     Dosage: UNK
     Route: 058
     Dates: start: 20100301
  3. NOVOLOG MIX 70/30 [Suspect]
     Dosage: 20U IN THE MORNING, 18U AT NIGHT
     Route: 058
     Dates: start: 20100401

REACTIONS (5)
  - HYPOAESTHESIA [None]
  - HYPOTENSION [None]
  - LOSS OF CONSCIOUSNESS [None]
  - PRURITUS [None]
  - URTICARIA [None]
